FAERS Safety Report 16467101 (Version 1)
Quarter: 2019Q2

REPORT INFORMATION
  Report Type: Spontaneous
  Country: PL (occurrence: PL)
  Receive Date: 20190624
  Receipt Date: 20190624
  Transmission Date: 20190711
  Serious: Yes (Hospitalization)
  Sender: FDA-Public Use
  Company Number: PL-SA-2019SA167442

PATIENT
  Age: 56 Year
  Sex: Female

DRUGS (6)
  1. SERTRALINE [Interacting]
     Active Substance: SERTRALINE HYDROCHLORIDE
     Indication: DEPRESSION
     Dosage: 100 MG, QD, IN THE MORNING
  2. HYDROXYZINE [Interacting]
     Active Substance: HYDROXYZINE HYDROCHLORIDE
     Indication: INITIAL INSOMNIA
     Dosage: 25 MG, QD, IN THE EVENING
  3. ENALAPRIL MALEATE. [Interacting]
     Active Substance: ENALAPRIL MALEATE
     Indication: HYPERTENSION
     Dosage: 20 MG, QD
  4. CELECOXIB. [Interacting]
     Active Substance: CELECOXIB
     Indication: BACK PAIN
     Dosage: 400 MG, QD
  5. INDAPAMIDE. [Suspect]
     Active Substance: INDAPAMIDE
     Indication: HYPERTENSION
     Dosage: 1.5 MG, QD, SR
  6. OMEPRAZOLE. [Interacting]
     Active Substance: OMEPRAZOLE
     Indication: BACK PAIN
     Dosage: 40 MG, QD

REACTIONS (7)
  - Multiple drug therapy [Unknown]
  - Burning mouth syndrome [Recovered/Resolved]
  - Oral discomfort [Recovered/Resolved]
  - Hypophagia [Recovered/Resolved]
  - Drug interaction [Unknown]
  - Pain [Recovered/Resolved]
  - Iron deficiency [Recovered/Resolved]
